FAERS Safety Report 5899882-6 (Version None)
Quarter: 2008Q3

REPORT INFORMATION
  Report Type: 
  Country: None (occurrence: None)
  Receive Date: 20080925
  Receipt Date: 20080925
  Transmission Date: 20090109
  Serious: Yes (Other)
  Sender: FDA-Public Use
  Company Number: None

PATIENT
  Age: 48 Year
  Sex: Female
  Weight: 55.3388 kg

DRUGS (1)
  1. TORADOL [Suspect]
     Dosage: IV ADMINISTERED
     Route: 042
     Dates: start: 20060628, end: 20060628

REACTIONS (8)
  - ANURIA [None]
  - DRUG INTOLERANCE [None]
  - FLUID RETENTION [None]
  - HEADACHE [None]
  - JOINT SWELLING [None]
  - OEDEMA PERIPHERAL [None]
  - RENAL FAILURE [None]
  - VOMITING PROJECTILE [None]
